FAERS Safety Report 7434109-5 (Version None)
Quarter: 2011Q2

REPORT INFORMATION
  Report Type: 
  Country: None (occurrence: None)
  Receive Date: 20110425
  Receipt Date: 20110411
  Transmission Date: 20111010
  Serious: Yes (Hospitalization, Other)
  Sender: FDA-Public Use
  Company Number: DE-JNJFOC-20110404698

PATIENT
  Age: 17 Year
  Sex: Male
  Weight: 56 kg

DRUGS (4)
  1. REMICADE [Suspect]
     Indication: CROHN'S DISEASE
     Route: 042
  2. MESALAMINE [Concomitant]
     Route: 065
  3. CALCILAC [Concomitant]
     Indication: OSTEOPOROSIS
     Route: 065
  4. PREDNISONE [Concomitant]
     Indication: PREMEDICATION
     Route: 042

REACTIONS (6)
  - HYPOTENSION [None]
  - TACHYCARDIA [None]
  - INFUSION RELATED REACTION [None]
  - FACE OEDEMA [None]
  - RASH [None]
  - URTICARIA [None]
